FAERS Safety Report 7525757-2 (Version None)
Quarter: 2011Q2

REPORT INFORMATION
  Report Type: 
  Country: None (occurrence: None)
  Receive Date: 20110606
  Receipt Date: 20110603
  Transmission Date: 20111010
  Serious: Yes (Death)
  Sender: FDA-Public Use
  Company Number: PHHY2010BR78980

PATIENT
  Sex: Male
  Weight: 50 kg

DRUGS (1)
  1. DIOVAN HCT [Suspect]
     Dosage: 160 MG VALS AND 12.5 MG AMLO,1 TABLET DAILY

REACTIONS (1)
  - PROSTATE CANCER [None]
